FAERS Safety Report 6761686-X (Version None)
Quarter: 2010Q2

REPORT INFORMATION
  Report Type: 
  Country: None (occurrence: None)
  Receive Date: 20100520
  Receipt Date: 20100513
  Transmission Date: 20101027
  Serious: Yes (Death)
  Sender: FDA-Public Use
  Company Number: 2010023102

PATIENT
  Age: 78 Year
  Sex: Male

DRUGS (6)
  1. HAEMOCOMPLETTAN P (FIBRINOGEN CONCENTRATE (HUMAN)) LOT# 90966011C [Suspect]
     Indication: SEPSIS
     Dosage: 4 G INTRAVENOUS (NOT OTHERWISE SPECIFIED)
     Route: 042
     Dates: start: 20090508, end: 20090508
  2. VITAMIN K  /01542801/(VITAMIN K NOS) [Concomitant]
  3. HYDROCORTONE [Concomitant]
  4. TAZOCI N (PIP/TAZO) [Concomitant]
  5. PABRINEX /00636301/(PABRINEX /00636301/) [Concomitant]
  6. MIDAZOLAM HCL [Concomitant]

REACTIONS (1)
  - GANGRENE [None]
